FAERS Safety Report 5595079-8 (Version None)
Quarter: 2008Q1

REPORT INFORMATION
  Report Type: 
  Country: None (occurrence: None)
  Receive Date: 20080117
  Receipt Date: 20080102
  Transmission Date: 20080703
  Serious: Yes (Hospitalization)
  Sender: FDA-Public Use
  Company Number: FR-GENENTECH-254184

PATIENT
  Sex: Female

DRUGS (4)
  1. AVASTIN [Suspect]
     Indication: COLORECTAL CANCER
     Dosage: 260 MG, QD
     Route: 042
     Dates: start: 20070913, end: 20070913
  2. CALCIUM LEVOFOLINATE [Suspect]
     Indication: COLORECTAL CANCER
     Dosage: 100 MG, QD
     Route: 042
     Dates: start: 20070913, end: 20070913
  3. ELOXATIN [Suspect]
     Indication: COLORECTAL CANCER
     Dosage: 85 MG, QD
     Route: 042
     Dates: start: 20070913, end: 20070913
  4. FLUOROURACIL [Suspect]
     Indication: COLORECTAL CANCER
     Dosage: 400 MG, QD
     Route: 042
     Dates: start: 20070913, end: 20070913

REACTIONS (4)
  - AMNESIA [None]
  - CONVULSION [None]
  - LOSS OF CONSCIOUSNESS [None]
  - PSYCHOMOTOR SKILLS IMPAIRED [None]
